FAERS Safety Report 14092669 (Version 2)
Quarter: 2017Q4

REPORT INFORMATION
  Report Type: Spontaneous
  Country: DE (occurrence: DE)
  Receive Date: 20171016
  Receipt Date: 20171025
  Transmission Date: 20180321
  Serious: Yes (Other)
  Sender: FDA-Public Use
  Company Number: DE-BAYER-2017-191869

PATIENT
  Age: 47 Year
  Sex: Female
  Weight: 64 kg

DRUGS (2)
  1. JAYDESS [Suspect]
     Active Substance: LEVONORGESTREL
     Indication: CONTRACEPTION
     Dosage: 14 MCG/24HR, CONT
     Route: 015
     Dates: start: 20150821, end: 20161017
  2. L-THYROX [Concomitant]
     Active Substance: LEVOTHYROXINE SODIUM
     Indication: AUTOIMMUNE THYROIDITIS
     Dosage: DAILY DOSE 100 ?G
     Dates: start: 19970801

REACTIONS (24)
  - Constipation [None]
  - Abdominal pain lower [Recovered/Resolved]
  - Fatigue [Not Recovered/Not Resolved]
  - Arthralgia [Recovered/Resolved]
  - Intentional self-injury [Recovered/Resolved]
  - Distractibility [None]
  - Hypertrichosis [None]
  - Skin hyperpigmentation [None]
  - Disturbance in attention [None]
  - Balance disorder [None]
  - Sleep disorder [Recovered/Resolved]
  - Thinking abnormal [None]
  - Hypoaesthesia [None]
  - Hyperhidrosis [None]
  - Insomnia [Recovered/Resolved]
  - Agitation [None]
  - Alopecia [None]
  - Dizziness [None]
  - Depressed mood [Recovering/Resolving]
  - Restlessness [Recovered/Resolved]
  - Muscular weakness [None]
  - Dyspepsia [None]
  - Ovarian cyst [Recovered/Resolved]
  - Skin discolouration [None]

NARRATIVE: CASE EVENT DATE: 20150822
